FAERS Safety Report 4733066-X (Version None)
Quarter: 2005Q3

REPORT INFORMATION
  Report Type: 
  Country: None (occurrence: None)
  Receive Date: 20050729
  Receipt Date: 20050728
  Transmission Date: 20060218
  Serious: Yes (Hospitalization, Other)
  Sender: FDA-Public Use
  Company Number: HQWYE362021JUL05

PATIENT
  Age: 36 Year
  Sex: Male

DRUGS (3)
  1. PANTOPRAZOLE SODIUM [Suspect]
     Indication: BACK PAIN
     Dosage: 20 MG 1 X PER 1 DAY
     Route: 048
     Dates: start: 20050506, end: 20050512
  2. KETOPROFEN [Suspect]
     Indication: BACK PAIN
     Dosage: 150 MG 2X PER 1 DAY
     Route: 048
     Dates: start: 20050506, end: 20050512
  3. ACETAMINOPHEN W/ PROPOXYPHENE HCL [Suspect]
     Indication: BACK PAIN
     Dosage: 4 DOSAGE FORM 1X PER 1 DAY
     Route: 048
     Dates: start: 20050506, end: 20050512

REACTIONS (4)
  - ALANINE AMINOTRANSFERASE INCREASED [None]
  - ASPARTATE AMINOTRANSFERASE INCREASED [None]
  - GAMMA-GLUTAMYLTRANSFERASE INCREASED [None]
  - RENAL FAILURE [None]
